FAERS Safety Report 8612109-7 (Version None)
Quarter: 2012Q3

REPORT INFORMATION
  Report Type: 
  Country: None (occurrence: None)
  Receive Date: 20120822
  Receipt Date: 20120813
  Transmission Date: 20120928
  Serious: Yes (Hospitalization)
  Sender: FDA-Public Use
  Company Number: JP-BRISTOL-MYERS SQUIBB COMPANY-16451593

PATIENT
  Age: 71 Year
  Sex: Male

DRUGS (2)
  1. ERBITUX [Suspect]
     Indication: COLON CANCER
     Dosage: 30JAN-30JAN09-400MG/M2-1 IN 1WK 09FEB-ONG-250MG/M2-1 IN 1WK. INF
     Route: 042
     Dates: start: 20090130, end: 20120314
  2. IRINOTECAN HYDROCHLORIDE [Suspect]
     Indication: COLON CANCER
     Dosage: INF
     Route: 042
     Dates: start: 20090130

REACTIONS (1)
  - ILEUS [None]
